FAERS Safety Report 13020238 (Version 5)
Quarter: 2017Q2

REPORT INFORMATION
  Report Type: Spontaneous
  Country: JP (occurrence: JP)
  Receive Date: 20161212
  Receipt Date: 20170414
  Transmission Date: 20170830
  Serious: Yes (Other)
  Sender: FDA-Public Use
  Company Number: JP-ALLERGAN-1679879US

PATIENT
  Age: 27 Year
  Sex: Female

DRUGS (6)
  1. ASENAPINE MALEATE - BP [Suspect]
     Active Substance: ASENAPINE MALEATE
     Indication: HALLUCINATION, AUDITORY
     Dosage: 5 MG, BID
     Route: 060
     Dates: start: 20161107, end: 20161121
  2. ETHYL LOFLAZEPATE [Concomitant]
     Active Substance: ETHYL LOFLAZEPATE
     Dosage: UNK
     Dates: start: 20160314
  3. ETIZOLAM [Concomitant]
     Active Substance: ETIZOLAM
     Dosage: UNK
     Dates: start: 20160314
  4. RONASEN [Concomitant]
     Active Substance: BLONANSERIN
     Dosage: UNK
     Dates: start: 20160418
  5. RONASEN [Concomitant]
     Active Substance: BLONANSERIN
     Indication: PSYCHIATRIC SYMPTOM
     Dosage: 24 MG, QD
     Dates: start: 20161024
  6. ARIPIPRAZOLE. [Concomitant]
     Active Substance: ARIPIPRAZOLE
     Dosage: UNK
     Dates: start: 20160418, end: 20170313

REACTIONS (1)
  - Rash generalised [Recovering/Resolving]

NARRATIVE: CASE EVENT DATE: 20161110
